FAERS Safety Report 22207565 (Version 2)
Quarter: 2023Q2

REPORT INFORMATION
  Report Type: Spontaneous
  Country: US (occurrence: US)
  Receive Date: 20230413
  Receipt Date: 20230509
  Transmission Date: 20230721
  Serious: Yes (Other)
  Sender: FDA-Public Use
  Company Number: US-PFIZER INC-202300151954

PATIENT
  Age: 68 Year
  Sex: Female
  Weight: 48.99 kg

DRUGS (1)
  1. PREMARIN [Suspect]
     Active Substance: ESTROGENS, CONJUGATED
     Indication: Hysterectomy
     Dosage: 0.625 MG, 1X/DAY(0.625MG ONCE PER DAY BY MOUTH)
     Route: 048
     Dates: start: 1995, end: 1995

REACTIONS (5)
  - Cystitis interstitial [Recovering/Resolving]
  - Condition aggravated [Recovering/Resolving]
  - Autoimmune disorder [Unknown]
  - Drug intolerance [Unknown]
  - Discomfort [Unknown]
